FAERS Safety Report 8066524-3 (Version None)
Quarter: 2012Q1

REPORT INFORMATION
  Report Type: 
  Country: None (occurrence: None)
  Receive Date: 20120124
  Receipt Date: 20120110
  Transmission Date: 20120608
  Serious: Yes (Other)
  Sender: FDA-Public Use
  Company Number: PHHY2011JP111250

PATIENT
  Sex: Female

DRUGS (2)
  1. METHOTREXATE [Concomitant]
     Indication: PROPHYLAXIS AGAINST GRAFT VERSUS HOST DISEASE
     Dates: start: 20091101
  2. CYCLOSPORINE [Suspect]
     Indication: PROPHYLAXIS AGAINST GRAFT VERSUS HOST DISEASE
     Dates: start: 20091101, end: 20100101

REACTIONS (4)
  - THROMBOTIC MICROANGIOPATHY [None]
  - PLATELET COUNT DECREASED [None]
  - GASTRIC ANTRAL VASCULAR ECTASIA [None]
  - HAEMATEMESIS [None]
